FAERS Safety Report 15060125 (Version 2)
Quarter: 2018Q3

REPORT INFORMATION
  Report Type: Spontaneous
  Country: US (occurrence: US)
  Receive Date: 20180625
  Receipt Date: 20180723
  Transmission Date: 20181010
  Serious: No
  Sender: FDA-Public Use
  Company Number: US-SUNOVION-2018SUN002375

PATIENT
  Age: 64 Year
  Sex: Male
  Weight: 95.11 kg

DRUGS (3)
  1. LATUDA [Suspect]
     Active Substance: LURASIDONE HYDROCHLORIDE
     Indication: BIPOLAR II DISORDER
     Dosage: 20 MG, UNK, WITH MEAL
     Route: 048
     Dates: start: 20161002
  2. LATUDA [Suspect]
     Active Substance: LURASIDONE HYDROCHLORIDE
     Dosage: 100 MG, UNK, WITH MEAL
     Route: 048
  3. LATUDA [Suspect]
     Active Substance: LURASIDONE HYDROCHLORIDE
     Dosage: 20 MG, UNK, WITH MEAL
     Route: 048
     Dates: end: 20171110

REACTIONS (7)
  - Off label use [Unknown]
  - Dry mouth [Unknown]
  - Toothache [Unknown]
  - Dyskinesia [Not Recovered/Not Resolved]
  - Trismus [Not Recovered/Not Resolved]
  - Bruxism [Not Recovered/Not Resolved]
  - Dystonia [Not Recovered/Not Resolved]

NARRATIVE: CASE EVENT DATE: 201709
